FAERS Safety Report 15961250 (Version 2)
Quarter: 2019Q1

REPORT INFORMATION
  Report Type: Report from Study
  Country: US (occurrence: US)
  Receive Date: 20190214
  Receipt Date: 20190301
  Transmission Date: 20190417
  Serious: Yes (Hospitalization)
  Sender: FDA-Public Use
  Company Number: US-VELOXIS PHARMACEUTICALS, INC.-2019VELUS1397

PATIENT
  Age: 60 Year
  Sex: Male
  Weight: 132.4 kg

DRUGS (10)
  1. BACTRIM [Concomitant]
     Active Substance: SULFAMETHOXAZOLE\TRIMETHOPRIM
     Indication: PNEUMOCYSTIS JIROVECII PNEUMONIA
     Dosage: UNK
  2. CIPROFLOXACIN. [Concomitant]
     Active Substance: CIPROFLOXACIN
     Indication: URINARY TRACT INFECTION
     Dosage: 500 MG, BID
     Route: 048
  3. MYCOPHENOLATE SODIUM [Concomitant]
     Active Substance: MYCOPHENOLATE SODIUM
     Indication: RENAL TRANSPLANT
     Dosage: 720 MG, BID
     Route: 048
  4. OMEGA 3                            /01334101/ [Concomitant]
     Active Substance: OMEGA-3 FATTY ACIDS
     Indication: BLOOD TRIGLYCERIDES INCREASED
     Dosage: 2 G, QD
     Route: 048
  5. ENVARSUS XR [Suspect]
     Active Substance: TACROLIMUS
     Indication: RENAL TRANSPLANT
     Dosage: 12 MG, QD
     Route: 048
     Dates: start: 20190202
  6. ROSUVASTATIN. [Concomitant]
     Active Substance: ROSUVASTATIN
     Indication: CORONARY ARTERY DISEASE
     Dosage: 20 MG, QD AT BED TIME
     Route: 048
  7. VALGANCICLOVIR. [Concomitant]
     Active Substance: VALGANCICLOVIR
     Indication: ANTIVIRAL PROPHYLAXIS
     Dosage: 450 MG, QD
     Route: 048
  8. CLOPIDOGREL [Concomitant]
     Active Substance: CLOPIDOGREL BISULFATE
     Indication: CORONARY ARTERY BYPASS
     Dosage: 75 MG, QD
     Route: 048
  9. METOPROLOL XL SANDOZ [Concomitant]
     Active Substance: METOPROLOL SUCCINATE
     Indication: CORONARY ARTERY DISEASE
     Dosage: 25 MG, QD
     Route: 048
  10. OXYCODONE [Concomitant]
     Active Substance: OXYCODONE
     Indication: RENAL TRANSPLANT
     Dosage: 5 MG, QID AS NEEDED
     Route: 048

REACTIONS (1)
  - Dehydration [Recovered/Resolved]

NARRATIVE: CASE EVENT DATE: 20190205
